FAERS Safety Report 8172590-7 (Version None)
Quarter: 2012Q1

REPORT INFORMATION
  Report Type: 
  Country: None (occurrence: None)
  Receive Date: 20120229
  Receipt Date: 20120227
  Transmission Date: 20120608
  Serious: No
  Sender: FDA-Public Use
  Company Number: US-PFIZER INC-2012052753

PATIENT
  Sex: Male
  Weight: 97.506 kg

DRUGS (4)
  1. CHANTIX [Suspect]
     Indication: SMOKING CESSATION THERAPY
     Dosage: UNK
     Route: 048
  2. HYDROCODONE BITARTRATE [Interacting]
     Dosage: 7.5 MG, 4X/DAY
  3. HYDROCODONE BITARTRATE [Interacting]
     Indication: BACK DISORDER
     Dosage: UNK
  4. CHANTIX [Interacting]
     Dosage: 0.5 MG, UNK
     Route: 048
     Dates: start: 20120101, end: 20120206

REACTIONS (2)
  - DRUG INTERACTION [None]
  - DRUG INEFFECTIVE [None]
